FAERS Safety Report 6792702-7 (Version None)
Quarter: 2010Q2

REPORT INFORMATION
  Report Type: 
  Country: None (occurrence: None)
  Receive Date: 20100624
  Receipt Date: 20080922
  Transmission Date: 20101027
  Serious: No
  Sender: FDA-Public Use
  Company Number: US-PFIZER INC-2008079666

PATIENT
  Sex: Female

DRUGS (4)
  1. GEODON [Suspect]
     Dates: start: 20080901
  2. LAMICTAL [Concomitant]
  3. CITALOPRAM [Concomitant]
  4. ABILIFY [Concomitant]

REACTIONS (1)
  - TREMOR [None]
